FAERS Safety Report 4549898-7 (Version None)
Quarter: 2004Q4

REPORT INFORMATION
  Report Type: 
  Country: None (occurrence: None)
  Receive Date: 20041228
  Receipt Date: 20041029
  Transmission Date: 20050328
  Serious: Yes (Life-Threatening, Hospitalization)
  Sender: FDA-Public Use
  Company Number: WAES 0411USA00040

PATIENT
  Sex: Female

DRUGS (6)
  1. INVANZ [Suspect]
     Indication: KLEBSIELLA INFECTION
     Dosage: 1 GM/IV
     Route: 042
     Dates: start: 20041013, end: 20041026
  2. ALDACTONE [Concomitant]
  3. LASIX [Concomitant]
  4. OXYCONTIN [Concomitant]
  5. PERCOCET [Concomitant]
  6. RITALIN [Concomitant]

REACTIONS (1)
  - BLOOD BILIRUBIN INCREASED [None]
